FAERS Safety Report 9106379 (Version 1)
Quarter: 2013Q1

REPORT INFORMATION
  Report Type: Spontaneous
  Country: AU (occurrence: AU)
  Receive Date: 20130221
  Receipt Date: 20130221
  Transmission Date: 20140127
  Serious: Yes (Hospitalization)
  Sender: FDA-Public Use
  Company Number: AU-PFIZER INC-2013062923

PATIENT
  Sex: Male

DRUGS (1)
  1. ADVIL [Suspect]

REACTIONS (1)
  - Haemorrhage [Unknown]
